FAERS Safety Report 8812059 (Version 1)
Quarter: 2012Q4

REPORT INFORMATION
  Report Type: Report from Study
  Country: CA (occurrence: CA)
  Receive Date: 20120927
  Receipt Date: 20120927
  Transmission Date: 20130627
  Serious: Yes (Death)
  Sender: FDA-Public Use
  Company Number: CA-ROCHE-1131812

PATIENT
  Sex: Male

DRUGS (8)
  1. AVASTIN [Suspect]
     Indication: COLORECTAL CANCER METASTATIC
     Route: 042
     Dates: start: 20110606, end: 20110706
  2. XELODA [Suspect]
     Indication: COLORECTAL CANCER METASTATIC
     Route: 048
     Dates: start: 201105, end: 201107
  3. SYNTHROID [Concomitant]
  4. METFORMIN [Concomitant]
  5. ATORVASTATIN [Concomitant]
  6. RANITIDINE [Concomitant]
  7. MORPHINE [Concomitant]
     Route: 065
  8. FOLIC ACID [Concomitant]

REACTIONS (1)
  - Gastrointestinal disorder [Fatal]
